FAERS Safety Report 13173130 (Version 1)
Quarter: 2017Q1

REPORT INFORMATION
  Report Type: Spontaneous
  Country: US (occurrence: US)
  Receive Date: 20170201
  Receipt Date: 20170201
  Transmission Date: 20170428
  Serious: No
  Sender: FDA-Public Use
  Company Number: US-ABBVIE-16P-163-1610894-00

PATIENT
  Sex: Female

DRUGS (1)
  1. HUMIRA [Suspect]
     Active Substance: ADALIMUMAB
     Indication: PRODUCT USED FOR UNKNOWN INDICATION
     Route: 058

REACTIONS (10)
  - Condition aggravated [Unknown]
  - Musculoskeletal disorder [Unknown]
  - Paraesthesia [Unknown]
  - Mass [Unknown]
  - Feeling cold [Unknown]
  - Axillary mass [Unknown]
  - Pain in extremity [Unknown]
  - Vein disorder [Unknown]
  - Hidradenitis [Unknown]
  - Hypoaesthesia [Unknown]
